FAERS Safety Report 17005391 (Version 4)
Quarter: 2019Q4

REPORT INFORMATION
  Report Type: Spontaneous
  Country: CA (occurrence: CA)
  Receive Date: 20191107
  Receipt Date: 20191218
  Transmission Date: 20200122
  Serious: Yes (Other)
  Sender: FDA-Public Use
  Company Number: CA-PFIZER INC-2019408211

PATIENT
  Age: 73 Year
  Sex: Male

DRUGS (7)
  1. NAPROXEN. [Concomitant]
     Active Substance: NAPROXEN
     Dosage: 500 MG, 2X/DAY
     Dates: start: 201910
  2. PREDNISONE. [Concomitant]
     Active Substance: PREDNISONE
     Dosage: UNK (TAPERING)
  3. CRESTOR [Concomitant]
     Active Substance: ROSUVASTATIN CALCIUM
     Dosage: UNK
  4. XELJANZ [Suspect]
     Active Substance: TOFACITINIB CITRATE
     Dosage: 5 MG, 2X/DAY
     Route: 048
     Dates: start: 20191104, end: 201911
  5. XELJANZ [Suspect]
     Active Substance: TOFACITINIB CITRATE
     Indication: RHEUMATOID ARTHRITIS
     Dosage: 5 MG, 2X/DAY
     Route: 048
     Dates: start: 20190906, end: 2019
  6. XELJANZ [Suspect]
     Active Substance: TOFACITINIB CITRATE
     Dosage: 5 MG, DAILY
     Route: 048
     Dates: start: 20191112
  7. PANTOLOC [PANTOPRAZOLE] [Concomitant]
     Active Substance: PANTOPRAZOLE SODIUM
     Dosage: 40 MG, 1X/DAY
     Dates: start: 201910

REACTIONS (13)
  - Nausea [Unknown]
  - Vomiting [Not Recovered/Not Resolved]
  - Gastric disorder [Not Recovered/Not Resolved]
  - Abdominal pain upper [Unknown]
  - Malaise [Unknown]
  - Gastroenteritis viral [Recovering/Resolving]
  - Asthenia [Unknown]
  - Arthralgia [Unknown]
  - Diabetes mellitus [Unknown]
  - Renal disorder [Unknown]
  - Abdominal discomfort [Not Recovered/Not Resolved]
  - Eating disorder [Unknown]
  - Retching [Not Recovered/Not Resolved]

NARRATIVE: CASE EVENT DATE: 2019
